FAERS Safety Report 25808346 (Version 1)
Quarter: 2025Q3

REPORT INFORMATION
  Report Type: Spontaneous
  Country: EU (occurrence: EU)
  Receive Date: 20250916
  Receipt Date: 20250916
  Transmission Date: 20251020
  Serious: Yes (Hospitalization, Other)
  Sender: MYLAN
  Company Number: None

PATIENT
  Age: 38 Year
  Sex: Male

DRUGS (16)
  1. DOCETAXEL [Suspect]
     Active Substance: DOCETAXEL
     Indication: Sarcoma metastatic
     Dates: start: 20170414, end: 20171003
  2. DOCETAXEL [Suspect]
     Active Substance: DOCETAXEL
     Route: 065
     Dates: start: 20170414, end: 20171003
  3. DOCETAXEL [Suspect]
     Active Substance: DOCETAXEL
     Route: 065
     Dates: start: 20170414, end: 20171003
  4. DOCETAXEL [Suspect]
     Active Substance: DOCETAXEL
     Dates: start: 20170414, end: 20171003
  5. GEMCITABINE [Suspect]
     Active Substance: GEMCITABINE
     Indication: Sarcoma metastatic
     Dates: start: 20170414, end: 20171003
  6. GEMCITABINE [Suspect]
     Active Substance: GEMCITABINE
     Route: 065
     Dates: start: 20170414, end: 20171003
  7. GEMCITABINE [Suspect]
     Active Substance: GEMCITABINE
     Route: 065
     Dates: start: 20170414, end: 20171003
  8. GEMCITABINE [Suspect]
     Active Substance: GEMCITABINE
     Dates: start: 20170414, end: 20171003
  9. DOXORUBICIN [Suspect]
     Active Substance: DOXORUBICIN
     Indication: Sarcoma
  10. DOXORUBICIN [Suspect]
     Active Substance: DOXORUBICIN
     Route: 065
  11. DOXORUBICIN [Suspect]
     Active Substance: DOXORUBICIN
     Route: 065
  12. DOXORUBICIN [Suspect]
     Active Substance: DOXORUBICIN
  13. IFOSFAMIDE [Suspect]
     Active Substance: IFOSFAMIDE
     Indication: Sarcoma
  14. IFOSFAMIDE [Suspect]
     Active Substance: IFOSFAMIDE
     Route: 065
  15. IFOSFAMIDE [Suspect]
     Active Substance: IFOSFAMIDE
     Route: 065
  16. IFOSFAMIDE [Suspect]
     Active Substance: IFOSFAMIDE

REACTIONS (4)
  - Sarcoma [Recovering/Resolving]
  - Malignant neoplasm progression [Unknown]
  - Metastases to lung [Unknown]
  - Product use in unapproved indication [Unknown]
